FAERS Safety Report 7335333-2 (Version None)
Quarter: 2011Q1

REPORT INFORMATION
  Report Type: 
  Country: None (occurrence: None)
  Receive Date: 20110307
  Receipt Date: 20110224
  Transmission Date: 20110831
  Serious: Yes (Hospitalization)
  Sender: FDA-Public Use
  Company Number: JP-ASTRAZENECA-2010SE57253

PATIENT
  Age: 27629 Day
  Sex: Female
  Weight: 37 kg

DRUGS (10)
  1. AMLODIPINE [Concomitant]
     Indication: HYPERTENSION
     Route: 048
  2. IRESSA [Suspect]
     Indication: LUNG NEOPLASM MALIGNANT
     Route: 048
     Dates: start: 20100910, end: 20101118
  3. FUROSEMIDE [Concomitant]
     Route: 048
  4. ALFASULY [Concomitant]
     Indication: OSTEOPOROSIS
     Route: 048
  5. MAGMITT [Concomitant]
     Indication: CONSTIPATION
     Route: 048
  6. IRESSA [Suspect]
     Route: 048
     Dates: start: 20101204
  7. SELBEX [Concomitant]
     Indication: GASTRITIS
     Dosage: BID
     Route: 048
  8. FERROUS CITRATE [Concomitant]
     Indication: ANAEMIA
     Route: 048
  9. FOSAMAC [Concomitant]
     Indication: OSTEOPOROSIS
     Route: 048
  10. BEZAFIBRATE [Concomitant]
     Indication: HYPERLIPIDAEMIA
     Route: 048

REACTIONS (1)
  - ANAEMIA [None]
